FAERS Safety Report 17662537 (Version 1)
Quarter: 2020Q2

REPORT INFORMATION
  Report Type: Spontaneous
  Country: SA (occurrence: SA)
  Receive Date: 20200413
  Receipt Date: 20200413
  Transmission Date: 20200713
  Serious: Yes (Hospitalization)
  Sender: FDA-Public Use
  Company Number: SA-AMNEAL PHARMACEUTICALS-2020-AMRX-01130

PATIENT
  Age: 4 Month
  Sex: Male

DRUGS (3)
  1. PROPRANOLOL HYDROCHLORIDE IR [Suspect]
     Active Substance: PROPRANOLOL HYDROCHLORIDE
     Indication: ULCERATED HAEMANGIOMA
     Dosage: 0.5 MILLIGRAM/KILOGRAM, DAILY; DIVIDED 3 TIMES A DAY
     Route: 048
  2. PROPRANOLOL HYDROCHLORIDE IR [Suspect]
     Active Substance: PROPRANOLOL HYDROCHLORIDE
     Dosage: 2 MILLIGRAM/KILOGRAM, DAILY; DIVIDED 3 TIMES A DAY
     Route: 048
  3. PROPRANOLOL HYDROCHLORIDE IR [Suspect]
     Active Substance: PROPRANOLOL HYDROCHLORIDE
     Dosage: 1 MILLIGRAM/KILOGRAM, DAILY; DIVIDED 3 TIMES A DAY
     Route: 048

REACTIONS (1)
  - Hyperkalaemia [Recovered/Resolved]
